FAERS Safety Report 9791392 (Version 2)
Quarter: 2014Q1

REPORT INFORMATION
  Report Type: Spontaneous
  Country: SE (occurrence: SE)
  Receive Date: 20140101
  Receipt Date: 20140219
  Transmission Date: 20141002
  Serious: Yes (Other)
  Sender: FDA-Public Use
  Company Number: CHNY2013SE002896

PATIENT
  Age: 52 Year
  Sex: Female

DRUGS (7)
  1. TEGRETOL [Suspect]
     Indication: TRIGEMINAL NEURALGIA
     Dosage: 1 TABLET MORNING AND 1 TABLET EVENING
     Dates: start: 20131011
  2. TEGRETOL [Suspect]
     Dosage: 1 TABLET MORNING AND 2 TABLETS IN THE EVENING
  3. LACTULOSE [Suspect]
     Dosage: UNK UKN, UNK
  4. SIMVASTATIN [Concomitant]
     Dosage: UNK UKN, UNK
  5. AMLODIPINE [Concomitant]
     Dosage: UNK UKN, UNK
  6. ENALAPRIL [Concomitant]
     Dosage: UNK UKN, UNK
  7. LORATADIN [Concomitant]
     Dosage: UNK UKN, UNK

REACTIONS (4)
  - Lip swelling [Not Recovered/Not Resolved]
  - Lip dry [Not Recovered/Not Resolved]
  - Urticaria [Not Recovered/Not Resolved]
  - Pruritus [Not Recovered/Not Resolved]
